FAERS Safety Report 16878319 (Version 2)
Quarter: 2019Q4

REPORT INFORMATION
  Report Type: Report from Study
  Country: US (occurrence: US)
  Receive Date: 20191002
  Receipt Date: 20191127
  Transmission Date: 20200122
  Serious: Yes (Other)
  Sender: FDA-Public Use
  Company Number: US-GLAXOSMITHKLINE-2019-TSO02466-US

PATIENT
  Sex: Female

DRUGS (1)
  1. NIRAPARIB [Suspect]
     Active Substance: NIRAPARIB
     Indication: MALIGNANT PERITONEAL NEOPLASM
     Dosage: 100 MG, IN THE MORNING WITH FOOD
     Route: 048

REACTIONS (7)
  - Tendon discomfort [Unknown]
  - Underdose [Unknown]
  - Wrist fracture [Unknown]
  - Carbohydrate antigen 125 increased [Unknown]
  - Fall [Unknown]
  - Anaemia [Unknown]
  - Squamous cell carcinoma [Unknown]
